FAERS Safety Report 5893473-9 (Version None)
Quarter: 2008Q3

REPORT INFORMATION
  Report Type: 
  Country: None (occurrence: None)
  Receive Date: 20080923
  Receipt Date: 20080922
  Transmission Date: 20090109
  Serious: Yes (Hospitalization)
  Sender: FDA-Public Use
  Company Number: US-BRISTOL-MYERS SQUIBB COMPANY-14262489

PATIENT
  Age: 57 Year
  Sex: Male
  Weight: 102 kg

DRUGS (22)
  1. TAXOL [Suspect]
     Indication: METASTATIC NEOPLASM
     Dosage: INITAL DOSE:4APR08.TOTAL NO OF COURSES:2 1/2.PROTOCOL PRESCRIBED DOSE PER COURSE:200MG/M2.75%DOSE
     Route: 042
     Dates: start: 20080425, end: 20080425
  2. CARBOPLATIN [Suspect]
     Indication: METASTATIC NEOPLASM
     Dosage: INITAL DOSE:4APR08.TOTAL NO OF COURSES:2 1/2.PROTOCOL PRESCRIBED DOSE PER COURSE:AUC OF 6.0.75%DOSE
     Route: 042
     Dates: start: 20080425, end: 20080425
  3. ETOPOSIDE [Suspect]
     Indication: METASTATIC NEOPLASM
     Dosage: INITAL DOSE:4APR08.TOTAL NO OF COUR:21/2.PROTOCOL PRESCRIBED DOSE PER COURSE:50/100MG.75%DOSE
     Route: 048
     Dates: start: 20080504, end: 20080504
  4. NEXIUM [Concomitant]
     Indication: DYSPEPSIA
     Dates: start: 20080301, end: 20080730
  5. LASIX [Concomitant]
     Indication: FLUID RETENTION
     Dates: start: 20040601, end: 20080701
  6. LASIX [Concomitant]
     Indication: HYPERTENSION
     Dates: start: 20040601, end: 20080701
  7. LANOXIN [Concomitant]
     Indication: PROPHYLAXIS
     Dates: start: 20040601, end: 20080701
  8. COREG [Concomitant]
     Indication: HYPERTENSION
     Dates: start: 20040601, end: 20080701
  9. NEURONTIN [Concomitant]
     Indication: PAIN
     Dates: start: 20080301, end: 20080701
  10. PRILOSEC [Concomitant]
     Indication: DYSPEPSIA
     Dates: start: 20070601, end: 20080701
  11. CARAFATE [Concomitant]
     Indication: DYSPEPSIA
     Dates: start: 20070601, end: 20080701
  12. REGLAN [Concomitant]
     Indication: DYSPEPSIA
     Dates: start: 20070601, end: 20080701
  13. COUMADIN [Concomitant]
     Indication: PROPHYLAXIS
     Dates: start: 20080301, end: 20080701
  14. LORTAB [Concomitant]
     Indication: PAIN
     Dates: start: 20080301, end: 20080701
  15. COLACE [Concomitant]
     Indication: CONSTIPATION PROPHYLAXIS
     Dates: start: 20080301, end: 20080701
  16. ZOCOR [Concomitant]
     Indication: HYPERLIPIDAEMIA
     Dates: start: 20060601, end: 20080701
  17. FISH OIL [Concomitant]
     Indication: SUPPLEMENTATION THERAPY
     Dates: start: 20070101, end: 20080701
  18. MEGACE [Concomitant]
     Indication: INCREASED APPETITE
     Dates: start: 20080401, end: 20080701
  19. ATIVAN [Concomitant]
     Indication: ANXIETY
     Dates: start: 20080401, end: 20080701
  20. PROMETHAZINE [Concomitant]
     Indication: NAUSEA
     Dates: start: 20080501, end: 20080701
  21. MILK OF MAGNESIA [Concomitant]
     Indication: CONSTIPATION
     Dates: start: 20080501, end: 20080701
  22. MS CONTIN [Concomitant]
     Indication: PAIN
     Dates: start: 20080501, end: 20080701

REACTIONS (6)
  - ABDOMINAL PAIN [None]
  - ANAEMIA [None]
  - CHEST PAIN [None]
  - DISEASE PROGRESSION [None]
  - DYSPNOEA [None]
  - HYPOTENSION [None]
